FAERS Safety Report 9578051 (Version 1)
Quarter: 2013Q4

REPORT INFORMATION
  Report Type: Spontaneous
  Country: US (occurrence: US)
  Receive Date: 20131001
  Receipt Date: 20131001
  Transmission Date: 20140711
  Serious: No
  Sender: FDA-Public Use
  Company Number: US-AMGEN-USASP2013011198

PATIENT
  Age: 54 Year
  Sex: Female
  Weight: 63.49 kg

DRUGS (13)
  1. ENBREL [Suspect]
     Indication: PRODUCT USED FOR UNKNOWN INDICATION
     Dosage: 50 MG, QWK
     Route: 058
  2. PLAQUENIL                          /00072602/ [Concomitant]
     Dosage: 200 MG, UNK
  3. LISINOPRIL [Concomitant]
     Dosage: 10 MG, UNK
  4. FOLIC ACID [Concomitant]
     Dosage: UNK
  5. OMEPRAZOLE [Concomitant]
     Dosage: 20 MG, UNK
  6. PREMARIN [Concomitant]
     Dosage: 0.625 MG, UNK
  7. METHOTREXATE [Concomitant]
     Dosage: 1 G, UNK
  8. GABAPENTIN [Concomitant]
     Dosage: 400 MG, UNK
  9. CYMBALTA [Concomitant]
     Dosage: 30 MG, UNK
  10. AMITIZA [Concomitant]
     Dosage: 8 MUG, UNK
  11. VICODIN ES [Concomitant]
     Dosage: 7.5 - 750
  12. FLEXERIL                           /00428402/ [Concomitant]
     Dosage: 5 MG, UNK
  13. LUNESTA [Concomitant]
     Dosage: 2 MG, UNK

REACTIONS (2)
  - Upper respiratory tract infection [Unknown]
  - Sinusitis [Unknown]
